FAERS Safety Report 6401201-3 (Version None)
Quarter: 2009Q4

REPORT INFORMATION
  Report Type: 
  Country: None (occurrence: None)
  Receive Date: 20091015
  Receipt Date: 20091009
  Transmission Date: 20100525
  Serious: Yes (Hospitalization, Disabling, Other)
  Sender: FDA-Public Use
  Company Number: CH-ROCHE-655812

PATIENT
  Sex: Female
  Weight: 39 kg

DRUGS (6)
  1. BONIVA [Suspect]
     Indication: RHEUMATOID ARTHRITIS
     Route: 042
     Dates: start: 20080101
  2. BONIVA [Suspect]
     Indication: DRUG USE FOR UNKNOWN INDICATION
     Route: 048
     Dates: start: 20060401, end: 20080101
  3. METHOTREXAT [Concomitant]
     Indication: RHEUMATOID ARTHRITIS
  4. SANDOZ-CALCIUM [Concomitant]
     Dosage: DRUG REPORTED: CA-SANDOZ
  5. FOLIC ACID [Concomitant]
  6. DALACIN [Concomitant]
     Dates: start: 20090921

REACTIONS (3)
  - OSTEOMYELITIS [None]
  - OSTEONECROSIS [None]
  - TOOTH LOSS [None]
